FAERS Safety Report 14019964 (Version 1)
Quarter: 2017Q3

REPORT INFORMATION
  Report Type: Spontaneous
  Country: US (occurrence: US)
  Receive Date: 20170928
  Receipt Date: 20170928
  Transmission Date: 20171128
  Serious: No
  Sender: FDA-Public Use
  Company Number: US-BAYER-2017-180443

PATIENT
  Age: 61 Year
  Sex: Male

DRUGS (1)
  1. STIVARGA [Suspect]
     Active Substance: REGORAFENIB
     Indication: COLON CANCER
     Dosage: DAILY DOSE 120 MG EVERY DAY FOR THREE WEEKS ON, THEN 1 WEEK OFF
     Route: 048
     Dates: start: 20170731

REACTIONS (2)
  - Off label use [None]
  - Constipation [Recovered/Resolved]

NARRATIVE: CASE EVENT DATE: 20170913
